FAERS Safety Report 18124098 (Version 4)
Quarter: 2022Q1

REPORT INFORMATION
  Report Type: Spontaneous
  Country: US (occurrence: US)
  Receive Date: 20200807
  Receipt Date: 20220218
  Transmission Date: 20220423
  Serious: Yes (Other)
  Sender: FDA-Public Use
  Company Number: US-BIOCODEX2-202001061

PATIENT

DRUGS (9)
  1. DIACOMIT [Suspect]
     Active Substance: STIRIPENTOL
     Indication: Developmental delay
     Dosage: AT 250MG, 2 ML BY MOUTH 3 TIMES A DAY
     Route: 065
     Dates: start: 20200406
  2. DIACOMIT [Suspect]
     Active Substance: STIRIPENTOL
     Dosage: 250 MG TWICE DAILY
     Route: 065
     Dates: start: 20200406
  3. DIACOMIT [Suspect]
     Active Substance: STIRIPENTOL
     Dosage: AT 75 MG TWICE DAILY
     Route: 065
     Dates: end: 202104
  4. ONFI [Concomitant]
     Active Substance: CLOBAZAM
     Indication: Developmental delay
     Route: 065
  5. KEPPRA [Concomitant]
     Active Substance: LEVETIRACETAM
     Indication: Product used for unknown indication
     Route: 065
  6. EPIDIOLEX [Concomitant]
     Active Substance: CANNABIDIOL
     Indication: Product used for unknown indication
     Route: 065
  7. LORATADINE [Concomitant]
     Active Substance: LORATADINE
     Indication: Product used for unknown indication
     Route: 065
  8. VITAMIN D NOS [Concomitant]
     Active Substance: VITAMIN D NOS
     Indication: Product used for unknown indication
     Route: 065
  9. VITAMINS NOS [Concomitant]
     Active Substance: VITAMINS
     Indication: Product used for unknown indication
     Route: 065

REACTIONS (4)
  - Seizure [Unknown]
  - Condition aggravated [Unknown]
  - Head injury [Unknown]
  - Behaviour disorder [Unknown]
